FAERS Safety Report 10237574 (Version 1)
Quarter: 2014Q2

REPORT INFORMATION
  Report Type: Report from Study
  Country: FR (occurrence: FR)
  Receive Date: 20140616
  Receipt Date: 20140616
  Transmission Date: 20141212
  Serious: Yes (Other)
  Sender: FDA-Public Use
  Company Number: FR-ROCHE-1417217

PATIENT
  Sex: Male
  Weight: 46.5 kg

DRUGS (2)
  1. MYCOPHENOLATE MOFETIL [Suspect]
     Indication: TRANSPLANT REJECTION
     Route: 048
     Dates: start: 20110513
  2. NEORAL [Suspect]
     Indication: TRANSPLANT REJECTION
     Route: 048
     Dates: start: 20110514

REACTIONS (1)
  - Transplant rejection [Recovered/Resolved]
